FAERS Safety Report 9250213 (Version 2)
Quarter: 2013Q4

REPORT INFORMATION
  Report Type: Spontaneous
  Country: US (occurrence: US)
  Receive Date: 20130424
  Receipt Date: 20131007
  Transmission Date: 20140711
  Serious: No
  Sender: FDA-Public Use
  Company Number: US-BIOGENIDEC-2013BI036861

PATIENT
  Sex: Female

DRUGS (1)
  1. TYSABRI [Suspect]
     Indication: MULTIPLE SCLEROSIS
     Route: 042
     Dates: start: 20111208

REACTIONS (9)
  - Cognitive disorder [Unknown]
  - Back disorder [Unknown]
  - Back pain [Unknown]
  - Pain in extremity [Unknown]
  - Muscular weakness [Unknown]
  - Emotional disorder [Unknown]
  - Depressed mood [Unknown]
  - Spinal disorder [Not Recovered/Not Resolved]
  - Multiple sclerosis relapse [Unknown]
